FAERS Safety Report 5915293-9 (Version None)
Quarter: 2008Q3

REPORT INFORMATION
  Report Type: 
  Country: None (occurrence: None)
  Receive Date: 20080909
  Receipt Date: 20080103
  Transmission Date: 20090109
  Serious: Yes (Death)
  Sender: FDA-Public Use
  Company Number: 163-20785-08010222 (0)

PATIENT
  Age: 50 Year
  Sex: Male

DRUGS (4)
  1. THALOMID [Suspect]
     Indication: MULTIPLE MYELOMA
     Dosage: 100 MG QD ORAL; 50 MG QD ORAL; 250 MG QD ORAL; 200 MG QD ORAL
     Route: 048
     Dates: start: 20040223, end: 20040101
  2. THALOMID [Suspect]
     Indication: MULTIPLE MYELOMA
     Dosage: 100 MG QD ORAL; 50 MG QD ORAL; 250 MG QD ORAL; 200 MG QD ORAL
     Route: 048
     Dates: start: 20070824, end: 20070101
  3. THALOMID [Suspect]
     Indication: MULTIPLE MYELOMA
     Dosage: 100 MG QD ORAL; 50 MG QD ORAL; 250 MG QD ORAL; 200 MG QD ORAL
     Route: 048
     Dates: start: 20071012, end: 20070101
  4. THALOMID [Suspect]
     Indication: MULTIPLE MYELOMA
     Dosage: 100 MG QD ORAL; 50 MG QD ORAL; 250 MG QD ORAL; 200 MG QD ORAL
     Route: 048
     Dates: start: 20040824

REACTIONS (1)
  - DEATH [None]
